FAERS Safety Report 14668398 (Version 1)
Quarter: 2018Q1

REPORT INFORMATION
  Report Type: Spontaneous
  Country: US (occurrence: US)
  Receive Date: 20180322
  Receipt Date: 20180322
  Transmission Date: 20180509
  Serious: Yes (Hospitalization, Other)
  Sender: FDA-Public Use
  Company Number: US-MYLANLABS-2018M1016949

PATIENT
  Age: 68 Year
  Sex: Female

DRUGS (1)
  1. TACROLIMUS. [Suspect]
     Active Substance: TACROLIMUS
     Indication: IMMUNOSUPPRESSANT DRUG THERAPY
     Dosage: UNK
     Route: 065

REACTIONS (7)
  - Azotaemia [Unknown]
  - Focal segmental glomerulosclerosis [Recovering/Resolving]
  - Pericardial effusion [Recovered/Resolved]
  - Thrombotic microangiopathy [Recovering/Resolving]
  - Cardiac failure [Unknown]
  - Nephrotic syndrome [Recovering/Resolving]
  - Fluid overload [Unknown]
